FAERS Safety Report 7880340-4 (Version None)
Quarter: 2011Q4

REPORT INFORMATION
  Report Type: 
  Country: None (occurrence: None)
  Receive Date: 20111101
  Receipt Date: 20111025
  Transmission Date: 20120403
  Serious: Yes (Other)
  Sender: FDA-Public Use
  Company Number: BR-PFIZER INC-2011254666

PATIENT
  Age: 39 Year
  Sex: Female
  Weight: 91 kg

DRUGS (10)
  1. MIDAZOLAM [Concomitant]
     Indication: PANIC DISORDER
  2. SERTRALINE [Concomitant]
     Indication: PANIC DISORDER
  3. VARENICLINE TARTRATE [Suspect]
     Indication: TOBACCO USER
     Dosage: 0.5 MG, 1X/DAY
     Route: 048
     Dates: start: 20111016, end: 20111001
  4. LAMOTRIGINE [Concomitant]
     Indication: DRUG THERAPY
     Dosage: UNK, 2X/DAY
     Dates: start: 20010101
  5. LAMOTRIGINE [Concomitant]
     Indication: PANIC DISORDER
  6. MIDAZOLAM [Concomitant]
     Indication: SLEEP DISORDER
     Dosage: UNK, 1X/DAY
     Dates: start: 20010101
  7. VARENICLINE TARTRATE [Suspect]
     Dosage: 1 MG, 2X/DAY
     Route: 048
     Dates: start: 20111001, end: 20111001
  8. CLONAZEPAM [Concomitant]
     Indication: ANXIOLYTIC THERAPY
     Dosage: 1 MG, 3X/DAY
     Dates: start: 20010101
  9. CLONAZEPAM [Concomitant]
     Indication: PANIC DISORDER
  10. SERTRALINE [Concomitant]
     Indication: ANTIDEPRESSANT THERAPY
     Dosage: 50 MG, 1X/DAY
     Dates: start: 20010101

REACTIONS (7)
  - BACTERIAL INFECTION [None]
  - ABDOMINAL DISTENSION [None]
  - ABDOMINAL PAIN [None]
  - INSOMNIA [None]
  - TOBACCO USER [None]
  - HEADACHE [None]
  - CONSTIPATION [None]
